FAERS Safety Report 25045204 (Version 1)
Quarter: 2025Q1

REPORT INFORMATION
  Report Type: Spontaneous
  Country: ID (occurrence: ID)
  Receive Date: 20250306
  Receipt Date: 20250306
  Transmission Date: 20250409
  Serious: Yes (Hospitalization)
  Sender: AMGEN
  Company Number: ID-AMGEN-IDNSP2025041310

PATIENT
  Age: 48 Year
  Sex: Male

DRUGS (1)
  1. MVASI [Suspect]
     Active Substance: BEVACIZUMAB-AWWB
     Indication: Product used for unknown indication
     Route: 065

REACTIONS (4)
  - Proliferative vitreoretinopathy [Unknown]
  - Candida infection [Unknown]
  - Retinal detachment [Unknown]
  - Eye disorder [Unknown]
